FAERS Safety Report 7355678-X (Version None)
Quarter: 2011Q1

REPORT INFORMATION
  Report Type: 
  Country: None (occurrence: None)
  Receive Date: 20110316
  Receipt Date: 20110303
  Transmission Date: 20110831
  Serious: Yes (Hospitalization)
  Sender: FDA-Public Use
  Company Number: AU-CELGENEUS-008-20785-11030331

PATIENT
  Sex: Male

DRUGS (4)
  1. PREDNISONE [Suspect]
     Indication: MULTIPLE MYELOMA
     Dosage: 110 MILLIGRAM
     Route: 048
     Dates: start: 20101216
  2. ASPIRIN [Concomitant]
     Route: 065
  3. MELPHALAN HYDROCHLORIDE [Suspect]
     Indication: MULTIPLE MYELOMA
     Dosage: 2 MILLIGRAM
     Route: 048
     Dates: start: 20101216
  4. THALIDOMIDE [Suspect]
     Indication: MULTIPLE MYELOMA
     Route: 048
     Dates: start: 20101216

REACTIONS (11)
  - DIARRHOEA [None]
  - ATELECTASIS [None]
  - NEUTROPHIL COUNT DECREASED [None]
  - NAUSEA [None]
  - BLOOD CREATININE DECREASED [None]
  - LYMPHOCYTE COUNT DECREASED [None]
  - CARDIOMEGALY [None]
  - ABDOMINAL PAIN UPPER [None]
  - HAEMOGLOBIN DECREASED [None]
  - WHITE BLOOD CELL COUNT DECREASED [None]
  - PLATELET COUNT DECREASED [None]
